FAERS Safety Report 14004209 (Version 1)
Quarter: 2017Q3

REPORT INFORMATION
  Report Type: Spontaneous
  Country: US (occurrence: US)
  Receive Date: 20170922
  Receipt Date: 20170922
  Transmission Date: 20171128
  Serious: No
  Sender: FDA-Public Use
  Company Number: US-JNJFOC-20170901176

PATIENT
  Sex: Female

DRUGS (4)
  1. LEVAQUIN [Suspect]
     Active Substance: LEVOFLOXACIN
     Indication: HIP ARTHROPLASTY
     Route: 048
     Dates: start: 201301
  2. LEVAQUIN [Suspect]
     Active Substance: LEVOFLOXACIN
     Indication: HIP ARTHROPLASTY
     Route: 048
     Dates: start: 201306
  3. LEVAQUIN [Suspect]
     Active Substance: LEVOFLOXACIN
     Indication: PNEUMONIA
     Route: 048
     Dates: start: 201301
  4. LEVAQUIN [Suspect]
     Active Substance: LEVOFLOXACIN
     Indication: PNEUMONIA
     Route: 048
     Dates: start: 201306

REACTIONS (4)
  - Muscular weakness [Recovering/Resolving]
  - Rash [Recovering/Resolving]
  - Neuropathy peripheral [Recovering/Resolving]
  - Peripheral swelling [Recovering/Resolving]
